FAERS Safety Report 25684853 (Version 1)
Quarter: 2025Q3

REPORT INFORMATION
  Report Type: Spontaneous
  Country: US (occurrence: US)
  Receive Date: 20250815
  Receipt Date: 20250815
  Transmission Date: 20251021
  Serious: No
  Sender: CSL BEHRING
  Company Number: US-BEH-2025215735

PATIENT
  Age: 30 Year
  Sex: Female
  Weight: 90.703 kg

DRUGS (1)
  1. HAEGARDA [Suspect]
     Active Substance: HUMAN C1-ESTERASE INHIBITOR
     Indication: Hereditary angioedema
     Route: 058
     Dates: start: 20241217

REACTIONS (2)
  - Weight decreased [Unknown]
  - Maternal exposure during breast feeding [Unknown]
